FAERS Safety Report 20706259 (Version 1)
Quarter: 2022Q2

REPORT INFORMATION
  Report Type: Spontaneous
  Country: US (occurrence: US)
  Receive Date: 20220413
  Receipt Date: 20220413
  Transmission Date: 20220721
  Serious: No
  Sender: FDA-Public Use
  Company Number: US-SCILEX PHARMACEUTICALS INC.-2021SCX00042

PATIENT
  Sex: Female

DRUGS (1)
  1. ZTLIDO [Suspect]
     Active Substance: LIDOCAINE
     Indication: Neuropathy peripheral
     Dosage: 1 PATCH, 1X/DAY (CUT INTO FOUR AND PUT ONE SQUARE ON EACH HAND AND FOOT IN THE EVENING)
     Route: 061

REACTIONS (3)
  - Rash macular [Unknown]
  - Discomfort [Unknown]
  - Pruritus [Unknown]
